FAERS Safety Report 5631758-1 (Version None)
Quarter: 2008Q1

REPORT INFORMATION
  Report Type: 
  Country: None (occurrence: None)
  Receive Date: 20080220
  Receipt Date: 20080211
  Transmission Date: 20080703
  Serious: Yes (Other)
  Sender: FDA-Public Use
  Company Number: US-ASTRAZENECA-2006UW11038

PATIENT
  Age: 51 Year
  Sex: Female
  Weight: 123.2 kg

DRUGS (14)
  1. SEROQUEL [Suspect]
     Indication: ANXIETY
     Dosage: 100-600 MG
     Route: 048
     Dates: start: 20020101, end: 20070101
  2. SEROQUEL [Suspect]
     Indication: DEPRESSION
     Dosage: 100-600 MG
     Route: 048
     Dates: start: 20020101, end: 20070101
  3. SEROQUEL [Suspect]
     Indication: BIPOLAR DISORDER
     Dosage: 100-600 MG
     Route: 048
     Dates: start: 20020101, end: 20070101
  4. ABILIFY [Concomitant]
     Dates: start: 20060101
  5. GEODON [Concomitant]
  6. HALDOL [Concomitant]
     Dosage: 2-3 MG
     Dates: start: 20000101, end: 20010101
  7. RISPERDAL [Concomitant]
     Dates: start: 19960101, end: 20060101
  8. STELAZINE [Concomitant]
     Dosage: 3-5 MG
     Dates: start: 19800101
  9. THORAZINE [Concomitant]
     Dates: start: 19680101, end: 19880101
  10. TRILAFON [Concomitant]
     Dates: start: 19680101, end: 19710101
  11. XANAX [Concomitant]
     Dosage: 3-5 MG
  12. KLONOPIN [Concomitant]
     Dates: start: 19910101
  13. ELAVIL [Concomitant]
     Dates: start: 19820101, end: 19910101
  14. TRAZODONE HCL [Concomitant]
     Dosage: 25-250 MG

REACTIONS (5)
  - CHOLECYSTECTOMY [None]
  - DIABETES MELLITUS [None]
  - EATING DISORDER [None]
  - KNEE ARTHROPLASTY [None]
  - RADICULOTOMY [None]
